FAERS Safety Report 13961467 (Version 1)
Quarter: 2017Q3

REPORT INFORMATION
  Report Type: Spontaneous
  Country: GB (occurrence: GB)
  Receive Date: 20170912
  Receipt Date: 20170912
  Transmission Date: 20171128
  Serious: Yes (Hospitalization)
  Sender: FDA-Public Use
  Company Number: GB-TEVA-804204ACC

PATIENT
  Age: 85 Year
  Sex: Female

DRUGS (7)
  1. ALENDRONIC ACID [Concomitant]
     Active Substance: ALENDRONIC ACID
     Dosage: SAME DAY EACH WEEK - TAKES ON SUNDAYS.
  2. EVACAL D3 CHEWABLE [Concomitant]
     Dosage: 1500 MG/400 UNIT. PATIENT  STATES TAKES 1 TWO OR THREE TIMES A DAY - PATIENT UNSURE
  3. PHENYTOIN SODIUM. [Suspect]
     Active Substance: PHENYTOIN SODIUM
     Route: 048
     Dates: start: 20170531
  4. AMLODIPINE [Concomitant]
     Active Substance: AMLODIPINE BESYLATE
     Dosage: 5 MILLIGRAM DAILY;
  5. CLOPIDOGREL [Concomitant]
     Active Substance: CLOPIDOGREL BISULFATE
     Dosage: 75 MILLIGRAM DAILY; PATIENT CAN^T RECALL TAKING THIS. WITHHELD AS DUE CT HEAD.
  6. PROCHLORPERAZINE. [Concomitant]
     Active Substance: PROCHLORPERAZINE
     Dosage: 15 MILLIGRAM DAILY;
  7. SIMVASTATIN. [Concomitant]
     Active Substance: SIMVASTATIN
     Dosage: 20 MILLIGRAM DAILY; AT NIGHT

REACTIONS (2)
  - Toxicity to various agents [Unknown]
  - Fall [Recovered/Resolved]
